FAERS Safety Report 9555709 (Version 1)
Quarter: 2013Q3

REPORT INFORMATION
  Report Type: Report from Study
  Country: IN (occurrence: IN)
  Receive Date: 20130926
  Receipt Date: 20130926
  Transmission Date: 20140515
  Serious: Yes (Death, Hospitalization, Other)
  Sender: FDA-Public Use
  Company Number: PHHY2013IN106827

PATIENT
  Age: 57 Year
  Sex: Male

DRUGS (3)
  1. SIMULECT [Suspect]
     Indication: RENAL TRANSPLANT
     Dosage: 20 MG, UNK
     Route: 042
  2. FOL [Concomitant]
     Dosage: UNK
  3. INSULIN [Concomitant]
     Indication: DIABETES MELLITUS
     Dosage: UNK

REACTIONS (6)
  - Death [Fatal]
  - Loss of consciousness [Unknown]
  - Infection [Unknown]
  - Platelet count decreased [Unknown]
  - Blood potassium increased [Unknown]
  - Blood pressure decreased [Unknown]
